FAERS Safety Report 25183380 (Version 2)
Quarter: 2025Q2

REPORT INFORMATION
  Report Type: Spontaneous
  Country: JP (occurrence: JP)
  Receive Date: 20250410
  Receipt Date: 20250411
  Transmission Date: 20250716
  Serious: Yes (Hospitalization, Other)
  Sender: MSN LABORATORIES
  Company Number: JP-MSNLABS-2025MSNLIT00885

PATIENT

DRUGS (6)
  1. LACOSAMIDE [Suspect]
     Active Substance: LACOSAMIDE
     Indication: Product used for unknown indication
     Route: 065
  2. TRAZODONE [Suspect]
     Active Substance: TRAZODONE HYDROCHLORIDE
     Indication: Product used for unknown indication
     Route: 065
  3. ALPRAZOLAM [Suspect]
     Active Substance: ALPRAZOLAM
     Indication: Product used for unknown indication
     Route: 065
  4. MIRTAZAPINE [Suspect]
     Active Substance: MIRTAZAPINE
     Indication: Product used for unknown indication
     Route: 065
  5. LEMBOREXANT [Suspect]
     Active Substance: LEMBOREXANT
     Indication: Product used for unknown indication
     Route: 065
  6. LEVODOPA [Suspect]
     Active Substance: LEVODOPA
     Indication: Product used for unknown indication
     Route: 065

REACTIONS (14)
  - Overdose [Unknown]
  - Altered state of consciousness [Unknown]
  - Toxicity to various agents [Unknown]
  - Drug interaction [Unknown]
  - Electrocardiogram QT prolonged [Unknown]
  - Electrocardiogram QRS complex prolonged [Unknown]
  - Suicide attempt [Unknown]
  - Ventricular tachycardia [Unknown]
  - Glossoptosis [Unknown]
  - Respiratory acidosis [Unknown]
  - Ventricular extrasystoles [Unknown]
  - Electrocardiogram PR prolongation [Unknown]
  - Bradycardia [Recovered/Resolved]
  - Shock [Recovered/Resolved]
